FAERS Safety Report 6034858-X (Version None)
Quarter: 2009Q1

REPORT INFORMATION
  Report Type: 
  Country: None (occurrence: None)
  Receive Date: 20090108
  Receipt Date: 20090105
  Transmission Date: 20090719
  Serious: Yes (Life-Threatening, Disabling, Other)
  Sender: FDA-Public Use
  Company Number: DSA_31657_2008

PATIENT
  Sex: Female
  Weight: 108.8633 kg

DRUGS (9)
  1. DILTIAZEM [Suspect]
     Indication: ATRIAL FIBRILLATION
     Dosage: 360 MG 1X)
     Dates: start: 20071207, end: 20071217
  2. DILTIAZEM HYDROCHLORIDE [Suspect]
     Indication: ATRIAL FIBRILLATION
     Dosage: 120 MG BID, 120 MG EVERY 12 HOURS
     Dates: start: 20060831, end: 20071216
  3. TAURINE [Concomitant]
  4. COUMADIN [Concomitant]
  5. VITAMIN B-COMPLEX /00282501/ [Concomitant]
  6. C-VITAMIN [Concomitant]
  7. NATURAL VITAMIN E /00110501/ [Concomitant]
  8. MSM WITH GLUCOSAMINE /05460301/ [Concomitant]
  9. CHONDROITIN [Concomitant]

REACTIONS (26)
  - ABASIA [None]
  - ABDOMINAL DISTENSION [None]
  - ACTIVITIES OF DAILY LIVING IMPAIRED [None]
  - AMNESIA [None]
  - ARTHRALGIA [None]
  - ARTHRITIS [None]
  - ASTHENIA [None]
  - BACK PAIN [None]
  - BALANCE DISORDER [None]
  - DYSGRAPHIA [None]
  - DYSSTASIA [None]
  - EYE DISCHARGE [None]
  - FALL [None]
  - FATIGUE [None]
  - FLATULENCE [None]
  - HEADACHE [None]
  - INCONTINENCE [None]
  - MUSCULAR WEAKNESS [None]
  - MUSCULOSKELETAL DISORDER [None]
  - NERVOUSNESS [None]
  - OEDEMA PERIPHERAL [None]
  - PAIN IN EXTREMITY [None]
  - REFUSAL OF TREATMENT BY PATIENT [None]
  - THIRST [None]
  - TREMOR [None]
  - VISION BLURRED [None]
